FAERS Safety Report 5818749-2 (Version None)
Quarter: 2008Q3

REPORT INFORMATION
  Report Type: 
  Country: None (occurrence: None)
  Receive Date: 20080723
  Receipt Date: 20080717
  Transmission Date: 20090109
  Serious: Yes (Death, Hospitalization)
  Sender: FDA-Public Use
  Company Number: US-BAYER-200828058NA

PATIENT
  Age: 66 Year
  Sex: Male
  Weight: 105 kg

DRUGS (16)
  1. SORAFENIB/PLACEBO [Suspect]
     Indication: NON-SMALL CELL LUNG CANCER METASTATIC
     Route: 048
     Dates: start: 20080626, end: 20080702
  2. ERLOTINIB [Suspect]
     Indication: NON-SMALL CELL LUNG CANCER METASTATIC
     Dates: start: 20080626, end: 20080702
  3. PROVENTIL [Concomitant]
     Route: 055
     Dates: start: 20070604
  4. MIRALAX [Concomitant]
     Dates: start: 20070401
  5. OXYCODONE HCL [Concomitant]
     Dates: start: 20070228
  6. POTASSIUM CHLORIDE [Concomitant]
     Dates: start: 20070701
  7. PREGABALIN [Concomitant]
     Dates: start: 20071220
  8. SENOKOT [Concomitant]
  9. SYNTHROID [Concomitant]
     Dates: start: 20071005
  10. LUNESTA [Concomitant]
  11. ATIVAN [Concomitant]
     Dates: start: 20080705
  12. ALBUTEROL [Concomitant]
     Route: 055
     Dates: start: 20071210
  13. CODICLEAR DH [Concomitant]
     Dates: start: 20080225
  14. DURAGESIC-100 [Concomitant]
     Dates: start: 20080205
  15. LASIX [Concomitant]
     Dates: start: 20070724
  16. LEXAPRO [Concomitant]
     Dates: start: 20070724

REACTIONS (2)
  - CELLULITIS [None]
  - LUNG INFILTRATION [None]
